FAERS Safety Report 13777186 (Version 3)
Quarter: 2017Q4

REPORT INFORMATION
  Report Type: Spontaneous
  Country: US (occurrence: US)
  Receive Date: 20170721
  Receipt Date: 20171127
  Transmission Date: 20180320
  Serious: No
  Sender: FDA-Public Use
  Company Number: US-PFIZER INC-2017311777

PATIENT
  Age: 68 Year
  Sex: Male
  Weight: 78.46 kg

DRUGS (22)
  1. JANTOVEN [Concomitant]
     Active Substance: WARFARIN SODIUM
     Dosage: 5 MG, UNK
  2. MOBIC [Concomitant]
     Active Substance: MELOXICAM
     Indication: BACK PAIN
     Dosage: 15 MG, AS NEEDED (15MG TWICE PER DAY AS NEEDED)
     Dates: start: 201612
  3. NOVOLOG [Concomitant]
     Active Substance: INSULIN ASPART
     Dosage: UNK (INJECT BEFORE MEALS)
     Route: 051
  4. LYRICA [Suspect]
     Active Substance: PREGABALIN
     Dosage: 75 MG, 2X/DAY
  5. CREON [Concomitant]
     Active Substance: PANCRELIPASE AMYLASE\PANCRELIPASE LIPASE\PANCRELIPASE PROTEASE
     Indication: PANCREATIC ENZYMES
     Dosage: 3600 UNITS NANO-COATED TABLET, THREE TIMES PER DAY WITH MEALS
     Dates: start: 20150706
  6. CALCITRIOL. [Concomitant]
     Active Substance: CALCITRIOL
     Dosage: 0.25 UG, UNK
  7. VALIUM [Concomitant]
     Active Substance: DIAZEPAM
     Indication: INSOMNIA
     Dosage: 2 MG, AS NEEDED
     Dates: start: 201704
  8. RESTORIL [Concomitant]
     Active Substance: TEMAZEPAM
     Indication: INSOMNIA
     Dosage: 15 MG, AS NEEDED (15MG AS NEEDED AT NIGHT)
     Dates: start: 201702
  9. CRESTOR [Concomitant]
     Active Substance: ROSUVASTATIN CALCIUM
     Dosage: 10 MG, UNK
  10. TRESIBA [Concomitant]
     Active Substance: INSULIN DEGLUDEC
     Dosage: 12 IU, 1X/DAY (DAILY AT BED TIME)
  11. GABAPENTIN. [Suspect]
     Active Substance: GABAPENTIN
     Dosage: UNK
     Dates: start: 201707
  12. LYRICA [Suspect]
     Active Substance: PREGABALIN
     Indication: NEUROPATHY PERIPHERAL
     Dosage: 50 MG, UNK
     Route: 048
     Dates: start: 201706
  13. MOBIC [Concomitant]
     Active Substance: MELOXICAM
     Dosage: 15 MG, UNK
  14. ROSUVASTATIN CALCIUM. [Concomitant]
     Active Substance: ROSUVASTATIN CALCIUM
     Indication: VASCULAR GRAFT
     Dosage: 10 MG, 1X/DAY(10MG ONCE PER DAY AT BEDTIME)
     Dates: start: 2003
  15. NADOLOL. [Concomitant]
     Active Substance: NADOLOL
     Dosage: 20 MG, UNK
  16. CALCITRIOL. [Concomitant]
     Active Substance: CALCITRIOL
     Indication: VITAMIN D DEFICIENCY
     Dosage: 0.25 UG, 1X/DAY
     Dates: start: 1997
  17. FLOMAX [Concomitant]
     Active Substance: TAMSULOSIN HYDROCHLORIDE
     Dosage: 5 MG, UNK
  18. JANTOVEN [Concomitant]
     Active Substance: WARFARIN SODIUM
     Indication: HYPERCOAGULATION
     Dosage: 5 MG, 1X/DAY
     Dates: start: 1995
  19. NADOLOL. [Concomitant]
     Active Substance: NADOLOL
     Indication: PORTAL HYPERTENSION
     Dosage: 40 MG, 1X/DAY
     Dates: start: 2003
  20. GABAPENTIN. [Suspect]
     Active Substance: GABAPENTIN
     Indication: NEUROPATHY PERIPHERAL
     Dosage: 100 MG, 3X/DAY
     Route: 048
     Dates: start: 201707
  21. CREON [Concomitant]
     Active Substance: PANCRELIPASE AMYLASE\PANCRELIPASE LIPASE\PANCRELIPASE PROTEASE
     Dosage: 3600 IU, DAILY
  22. PROTONIX [Concomitant]
     Active Substance: PANTOPRAZOLE SODIUM
     Dosage: 80 MG, UNK (2X 40MG)

REACTIONS (2)
  - Muscle spasms [Recovered/Resolved]
  - Drug ineffective for unapproved indication [Recovered/Resolved]
